FAERS Safety Report 6648150-3 (Version None)
Quarter: 2010Q1

REPORT INFORMATION
  Report Type: 
  Country: None (occurrence: None)
  Receive Date: 20100324
  Receipt Date: 20100310
  Transmission Date: 20100710
  Serious: Yes (Disabling)
  Sender: FDA-Public Use
  Company Number: US-BAYER-201016838NA

PATIENT
  Age: 51 Year
  Sex: Female
  Weight: 80 kg

DRUGS (14)
  1. CAMPATH [Suspect]
     Indication: MULTIPLE SCLEROSIS
     Dosage: TOTAL DAILY DOSE: 12 MG
     Route: 042
     Dates: start: 20090601, end: 20090605
  2. ZANAFLEX [Concomitant]
     Dates: start: 20080805
  3. KLONOPIN [Concomitant]
     Dates: start: 20070501
  4. AMITIZA [Concomitant]
     Dosage: TOTAL DAILY DOSE: 48 ?G
     Route: 048
     Dates: start: 20081202
  5. METHYLPREDNISOLONE [Concomitant]
     Dates: start: 20090601, end: 20090603
  6. LUNESTA [Concomitant]
     Dates: start: 20060901
  7. NAPROXEN [Concomitant]
     Dates: start: 20070201
  8. MIRALAX [Concomitant]
     Dates: start: 20090101
  9. BENEFIBER [Concomitant]
     Dates: start: 20090101
  10. ESTROGEN [Concomitant]
     Dates: start: 20060101
  11. TYLENOL-500 [Concomitant]
     Dates: start: 20090601
  12. DARVOCET [Concomitant]
     Dates: start: 20090701
  13. ASTELIN [Concomitant]
     Dates: start: 20090927
  14. CYMBALTA [Concomitant]
     Dates: start: 20100112

REACTIONS (1)
  - SUBDURAL HAEMATOMA [None]
